FAERS Safety Report 8620393-9 (Version None)
Quarter: 2012Q3

REPORT INFORMATION
  Report Type: 
  Country: None (occurrence: None)
  Receive Date: 20120824
  Receipt Date: 20120814
  Transmission Date: 20120928
  Serious: Yes (Congenital Anomaly)
  Sender: FDA-Public Use
  Company Number: US-GLAXOSMITHKLINE-A0990811A

PATIENT
  Sex: Female
  Weight: 3.1 kg

DRUGS (1)
  1. PAXIL [Suspect]
     Indication: ANXIETY
     Route: 064

REACTIONS (2)
  - SPINA BIFIDA [None]
  - FOETAL EXPOSURE DURING PREGNANCY [None]
